FAERS Safety Report 10609957 (Version 7)
Quarter: 2015Q3

REPORT INFORMATION
  Report Type: Spontaneous
  Country: US (occurrence: US)
  Receive Date: 20141126
  Receipt Date: 20150717
  Transmission Date: 20151125
  Serious: Yes (Hospitalization, Other)
  Sender: FDA-Public Use
  Company Number: US-PFIZER INC-2014324591

PATIENT
  Age: 57 Year
  Sex: Female
  Weight: 97 kg

DRUGS (11)
  1. LYRICA [Suspect]
     Active Substance: PREGABALIN
     Indication: NEURALGIA
  2. L-METHYLFOLATE [Concomitant]
     Indication: CEREBRAL DISORDER
     Dosage: 800 ?G, 3X/DAY
  3. L-METHYLFOLATE [Concomitant]
     Indication: PROPHYLAXIS
  4. L-TYROSINE [Concomitant]
     Indication: CEREBRAL DISORDER
     Dosage: 1000 MG, 3X/DAY
  5. N-L-ACETYLCISTIENE [Concomitant]
     Indication: INCREASED VISCOSITY OF BRONCHIAL SECRETION
  6. L-TYROSINE [Concomitant]
     Indication: PROPHYLAXIS
  7. OXYCODONE [Concomitant]
     Active Substance: OXYCODONE
     Indication: PROPHYLAXIS
     Dosage: 30 MG, UNK
  8. LYRICA [Suspect]
     Active Substance: PREGABALIN
     Indication: NEUROPATHY PERIPHERAL
     Dosage: UNK
  9. N-L-ACETYLCISTIENE [Concomitant]
     Indication: CEREBRAL DISORDER
     Dosage: 600 MG, 2X/DAY
  10. N-L-ACETYLCISTIENE [Concomitant]
     Indication: PROPHYLAXIS
  11. LYRICA [Suspect]
     Active Substance: PREGABALIN
     Indication: FIBROMYALGIA

REACTIONS (11)
  - Spinal disorder [Unknown]
  - Vomiting [Unknown]
  - Fall [Unknown]
  - Spinal compression fracture [Unknown]
  - Post procedural haemorrhage [Unknown]
  - Feeling abnormal [Unknown]
  - Memory impairment [Unknown]
  - Pain [Unknown]
  - Lumbar vertebral fracture [Unknown]
  - Fear [Unknown]
  - Eye disorder [Unknown]

NARRATIVE: CASE EVENT DATE: 2014
